APPROVED DRUG PRODUCT: PROMETRIUM
Active Ingredient: PROGESTERONE
Strength: 300MG
Dosage Form/Route: CAPSULE;ORAL
Application: N019781 | Product #003
Applicant: ACERTIS PHARMACEUTICALS LLC
Approved: Oct 15, 1999 | RLD: No | RS: No | Type: DISCN